FAERS Safety Report 7610601-5 (Version None)
Quarter: 2011Q3

REPORT INFORMATION
  Report Type: 
  Country: None (occurrence: None)
  Receive Date: 20110715
  Receipt Date: 20110712
  Transmission Date: 20111222
  Serious: Yes (Other)
  Sender: FDA-Public Use
  Company Number: GB-ROXANE LABORATORIES, INC.-2011-RO-00976RO

PATIENT
  Age: 39 Year
  Sex: Female
  Weight: 103 kg

DRUGS (4)
  1. GLICLAZIDE [Suspect]
     Indication: BLOOD GLUCOSE INCREASED
  2. PREDNISONE [Suspect]
     Indication: SARCOIDOSIS
  3. PREDNISONE [Suspect]
  4. METFORMIN HCL [Suspect]
     Indication: BLOOD GLUCOSE INCREASED

REACTIONS (5)
  - SLEEP APNOEA SYNDROME [None]
  - DIABETES MELLITUS [None]
  - BLOOD GLUCOSE INCREASED [None]
  - LACTIC ACIDOSIS [None]
  - WEIGHT INCREASED [None]
